FAERS Safety Report 7964965-3 (Version None)
Quarter: 2011Q4

REPORT INFORMATION
  Report Type: 
  Country: None (occurrence: None)
  Receive Date: 20111206
  Receipt Date: 20111206
  Transmission Date: 20120403
  Serious: Yes (Other)
  Sender: FDA-Public Use
  Company Number: None

PATIENT
  Age: 63 Year
  Sex: Male

DRUGS (7)
  1. POTASSIUM CHLORIDE [Concomitant]
  2. REVLIMID [Suspect]
     Indication: AMYLOIDOSIS
     Dosage: REVLIMID 10 MG DAILY X21D/28D ORALLY
     Route: 048
     Dates: start: 20110701
  3. LAMOTRIGINE [Concomitant]
  4. TERAZOSIN [Concomitant]
  5. FUROSEMIDE [Concomitant]
  6. VARDENAFIL HYDROCHLORIDE (LEVITRA) [Concomitant]
  7. TEAMZEPAM [Concomitant]

REACTIONS (2)
  - STOMATITIS [None]
  - DYSGEUSIA [None]
